FAERS Safety Report 6956472-1 (Version None)
Quarter: 2010Q3

REPORT INFORMATION
  Report Type: 
  Country: None (occurrence: None)
  Receive Date: 20100830
  Receipt Date: 20100825
  Transmission Date: 20110219
  Serious: Yes (Death)
  Sender: FDA-Public Use
  Company Number: US-ASTRAZENECA-2010SE36810

PATIENT
  Age: 60 Year
  Sex: Male

DRUGS (3)
  1. SYMBICORT [Suspect]
     Route: 055
  2. COMBIVENT [Concomitant]
     Route: 055
  3. NITROGLYCERIN [Concomitant]
     Route: 048

REACTIONS (1)
  - MYOCARDIAL INFARCTION [None]
